FAERS Safety Report 6016357-4 (Version None)
Quarter: 2008Q4

REPORT INFORMATION
  Report Type: 
  Country: None (occurrence: None)
  Receive Date: 20081222
  Receipt Date: 20081215
  Transmission Date: 20090506
  Serious: No
  Sender: FDA-Public Use
  Company Number: ZA-JNJFOC-20080605913

PATIENT
  Sex: Male
  Weight: 92 kg

DRUGS (3)
  1. DURAGESIC-100 [Suspect]
     Indication: ANKYLOSING SPONDYLITIS
     Route: 062
  2. SALAZOPYRIN [Concomitant]
  3. BREXECAM [Concomitant]

REACTIONS (2)
  - INCORRECT DRUG ADMINISTRATION DURATION [None]
  - INSOMNIA [None]
